FAERS Safety Report 5947951-4 (Version None)
Quarter: 2008Q4

REPORT INFORMATION
  Report Type: 
  Country: None (occurrence: None)
  Receive Date: 20081111
  Receipt Date: 20081007
  Transmission Date: 20090506
  Serious: No
  Sender: FDA-Public Use
  Company Number: A0750814A

PATIENT
  Sex: Female

DRUGS (2)
  1. TREXIMET [Suspect]
     Indication: MIGRAINE
     Dosage: 85MG SINGLE DOSE
     Route: 048
  2. BLOOD PRESSURE MEDICATION [Concomitant]

REACTIONS (3)
  - DIZZINESS [None]
  - FEELING DRUNK [None]
  - MUSCULAR WEAKNESS [None]
